FAERS Safety Report 7473376-9 (Version None)
Quarter: 2011Q1

REPORT INFORMATION
  Report Type: 
  Country: None (occurrence: None)
  Receive Date: 20110302
  Receipt Date: 20100701
  Transmission Date: 20110831
  Serious: Yes (Hospitalization)
  Sender: FDA-Public Use
  Company Number: 163-21880-10070071

PATIENT
  Age: 75 Year
  Sex: Male
  Weight: 92.5338 kg

DRUGS (1)
  1. REVLIMID [Suspect]
     Indication: MULTIPLE MYELOMA
     Dosage: 25 MG, DAILY FOR 21 OUT OF 28 DAYS, PO
     Route: 048
     Dates: start: 20100201

REACTIONS (6)
  - TREMOR [None]
  - DIZZINESS [None]
  - PRURITUS [None]
  - ACNE [None]
  - RASH PRURITIC [None]
  - SKIN DISCOLOURATION [None]
